FAERS Safety Report 7206638-0 (Version None)
Quarter: 2010Q4

REPORT INFORMATION
  Report Type: 
  Country: None (occurrence: None)
  Receive Date: 20101217
  Receipt Date: 20101012
  Transmission Date: 20110411
  Serious: No
  Sender: FDA-Public Use
  Company Number: 2010-00892

PATIENT
  Age: 45 Year
  Sex: Female
  Weight: 68.0396 kg

DRUGS (3)
  1. ZICAM COLD REMEDY NASAL GEL [Suspect]
     Dosage: SPORADIC
     Dates: start: 20071001, end: 20071201
  2. ZICAM COLD REMEDY ORAL MIST [Suspect]
     Dosage: SPORADIC
     Dates: start: 20071001, end: 20071201
  3. ZICAM COLD REMEDY RAPIDMELTS [Suspect]
     Dosage: SPORADIC, INTERMITTENT
     Dates: start: 20071001, end: 20071201

REACTIONS (1)
  - ANOSMIA [None]
